FAERS Safety Report 23965298 (Version 1)
Quarter: 2024Q2

REPORT INFORMATION
  Report Type: Spontaneous
  Country: ZA (occurrence: None)
  Receive Date: 20240612
  Receipt Date: 20240612
  Transmission Date: 20240716
  Serious: Yes (Life-Threatening)
  Sender: FDA-Public Use
  Company Number: 2024A133904

PATIENT
  Age: 21549 Day
  Sex: Female

DRUGS (11)
  1. DAPAGLIFLOZIN PROPANEDIOL [Suspect]
     Active Substance: DAPAGLIFLOZIN PROPANEDIOL
     Indication: Type 2 diabetes mellitus
     Dosage: UNKNOWN
     Route: 048
  2. HUMALOG MIX75/25 [Concomitant]
     Active Substance: INSULIN LISPRO
     Indication: Product used for unknown indication
  3. OMEPRAZOLE [Concomitant]
     Active Substance: DONEPEZIL HYDROCHLORIDE\OMEPRAZOLE\OMEPRAZOLE MAGNESIUM
     Indication: Gastrooesophageal reflux disease
  4. HUMALOG MIX 25 CART 100 IU [Concomitant]
     Indication: Diabetes mellitus
  5. ASPIRIN\CLOPIDOGREL BISULFATE [Concomitant]
     Active Substance: ASPIRIN\CLOPIDOGREL BISULFATE
     Indication: Blood test
     Dosage: 75/75 MG
  6. EZETIMIBE [Concomitant]
     Active Substance: EZETIMIBE
     Indication: Hyperlipidaemia
  7. BISOPROLOL FUMARATE [Concomitant]
     Active Substance: BISOPROLOL FUMARATE
     Indication: Cardiac failure
  8. SYNALEVE [Concomitant]
     Indication: Pain
  9. PREDNISONE [Concomitant]
     Active Substance: PREDNISONE
  10. ECOTRIN [Concomitant]
     Active Substance: ASPIRIN
     Indication: Blood test
  11. HYDROCHLOROTHIAZIDE\LISINOPRIL [Concomitant]
     Active Substance: HYDROCHLOROTHIAZIDE\LISINOPRIL
     Indication: Thrombosis prophylaxis

REACTIONS (1)
  - Cerebrovascular accident [Unknown]
